FAERS Safety Report 9424603 (Version 2)
Quarter: 2013Q3

REPORT INFORMATION
  Report Type: Spontaneous
  Country: ES (occurrence: ES)
  Receive Date: 20130729
  Receipt Date: 20130806
  Transmission Date: 20140515
  Serious: Yes (Death)
  Sender: FDA-Public Use
  Company Number: ES-JNJFOC-20130711846

PATIENT
  Sex: Female

DRUGS (5)
  1. DOXORUBICIN [Suspect]
     Indication: BREAST CANCER
     Route: 042
  2. FARMIBLASTINA [Suspect]
     Indication: BREAST CANCER
     Route: 065
  3. CYCLOPHOSPHAMIDE [Suspect]
     Indication: BREAST CANCER
     Route: 065
  4. PACLITAXEL [Suspect]
     Indication: BREAST CANCER
     Route: 065
  5. FLUOROURACIL [Suspect]
     Indication: BREAST CANCER
     Route: 065

REACTIONS (1)
  - Death [Fatal]
